FAERS Safety Report 18667614 (Version 1)
Quarter: 2020Q4

REPORT INFORMATION
  Report Type: Other
  Country: CN (occurrence: CN)
  Receive Date: 20201228
  Receipt Date: 20201228
  Transmission Date: 20210114
  Serious: Yes (Other)
  Sender: FDA-Public Use
  Company Number: CN-ROCHE-2735173

PATIENT

DRUGS (3)
  1. GIMERACIL;OTERACIL POTASSIUM;TEGAFUR [Suspect]
     Active Substance: GIMERACIL\OTERACIL\TEGAFUR
     Indication: PANCREATIC CARCINOMA
     Dosage: TAKING 14 DAYS, STOPPING 7 DAYS
     Route: 065
  2. CAPECITABINE. [Suspect]
     Active Substance: CAPECITABINE
     Indication: PANCREATIC CARCINOMA
     Dosage: FOR 14 DAYS AND STOPPING 7 DAYS: 21 DAYS CYCLE
     Route: 065
  3. GEMCITABINE. [Suspect]
     Active Substance: GEMCITABINE
     Indication: PANCREATIC CARCINOMA
     Dosage: ON THE 1ST AND 8TH DAY
     Route: 041

REACTIONS (10)
  - Anaemia [Unknown]
  - Hepatic function abnormal [Unknown]
  - Rash [Unknown]
  - Off label use [Unknown]
  - Vomiting [Unknown]
  - Intentional product use issue [Unknown]
  - Granulocyte count decreased [Unknown]
  - Platelet count decreased [Unknown]
  - Nausea [Unknown]
  - Diarrhoea [Unknown]
